FAERS Safety Report 14653073 (Version 2)
Quarter: 2019Q1

REPORT INFORMATION
  Report Type: Report from Study
  Country: JP (occurrence: JP)
  Receive Date: 20180319
  Receipt Date: 20190327
  Transmission Date: 20190417
  Serious: Yes (Other)
  Sender: FDA-Public Use
  Company Number: JP-UCBSA-2018006859

PATIENT
  Age: 76 Year
  Sex: Male
  Weight: 67 kg

DRUGS (3)
  1. LACOSAMIDE. [Suspect]
     Active Substance: LACOSAMIDE
     Indication: SIMPLE PARTIAL SEIZURES
     Dosage: 50 MG, ONCE DAILY (QD)
     Route: 048
     Dates: start: 20170922, end: 20171115
  2. ZONISAMIDE. [Concomitant]
     Active Substance: ZONISAMIDE
     Indication: SIMPLE PARTIAL SEIZURES
     Route: 048
     Dates: end: 20171115
  3. ALEVIATIN [Concomitant]
     Active Substance: PHENYTOIN SODIUM
     Indication: SIMPLE PARTIAL SEIZURES
     Dosage: 312.5 MG, UNK
     Route: 048

REACTIONS (2)
  - Affect lability [Recovered/Resolved]
  - Off label use [Unknown]

NARRATIVE: CASE EVENT DATE: 20170922
